FAERS Safety Report 5092892-0 (Version None)
Quarter: 2006Q3

REPORT INFORMATION
  Report Type: 
  Country: None (occurrence: None)
  Receive Date: 20060727
  Receipt Date: 20060408
  Transmission Date: 20061208
  Serious: Yes (Other)
  Sender: FDA-Public Use
  Company Number: 2005156083

PATIENT
  Sex: Female

DRUGS (4)
  1. LYRICA [Suspect]
     Indication: BACK PAIN
     Dosage: 300 MG (150 MCG,2 IN 1 D)
     Dates: start: 20050901
  2. MOBIC [Suspect]
     Indication: ARTHRITIS
  3. RESTORIL [Suspect]
     Indication: INSOMNIA
  4. PROTONIX [Concomitant]

REACTIONS (19)
  - AFFECT LABILITY [None]
  - ANXIETY [None]
  - ARTHRITIS [None]
  - ASTHENIA [None]
  - COGNITIVE DISORDER [None]
  - COLD SWEAT [None]
  - CONFUSIONAL STATE [None]
  - DECREASED APPETITE [None]
  - DEPRESSION [None]
  - DIZZINESS [None]
  - DRUG WITHDRAWAL SYNDROME [None]
  - FEELING ABNORMAL [None]
  - GAIT DISTURBANCE [None]
  - INSOMNIA [None]
  - NERVOUSNESS [None]
  - PAIN [None]
  - SUICIDE ATTEMPT [None]
  - TREMOR [None]
  - VOMITING [None]
